FAERS Safety Report 4452508-0 (Version None)
Quarter: 2004Q3

REPORT INFORMATION
  Report Type: 
  Country: None (occurrence: None)
  Receive Date: 20040916
  Receipt Date: 20040902
  Transmission Date: 20050211
  Serious: Yes (Hospitalization, Other)
  Sender: FDA-Public Use
  Company Number: 2004062449

PATIENT
  Sex: Female

DRUGS (2)
  1. PHENYTOIN [Suspect]
     Indication: EPILEPSY
  2. VALPROATE SODIUM [Suspect]
     Indication: EPILEPSY

REACTIONS (13)
  - BLOOD CALCIUM DECREASED [None]
  - BLOOD PRESSURE SYSTOLIC INCREASED [None]
  - DEPRESSED LEVEL OF CONSCIOUSNESS [None]
  - DIZZINESS [None]
  - DRUG TOXICITY [None]
  - GAIT DISTURBANCE [None]
  - HAEMATURIA [None]
  - HAEMODIALYSIS [None]
  - HYPERREFLEXIA [None]
  - HYPOCHROMIC ANAEMIA [None]
  - NYSTAGMUS [None]
  - PROTEINURIA [None]
  - VITH NERVE PARALYSIS [None]
